FAERS Safety Report 7638864-0 (Version None)
Quarter: 2011Q3

REPORT INFORMATION
  Report Type: 
  Country: None (occurrence: None)
  Receive Date: 20110727
  Receipt Date: 20110725
  Transmission Date: 20111222
  Serious: Yes (Hospitalization, Congenital Anomaly)
  Sender: FDA-Public Use
  Company Number: FR-PFIZER INC-2011167932

PATIENT
  Age: 39 Year
  Sex: Female

DRUGS (2)
  1. EFFEXOR [Suspect]
     Indication: MENTAL DISORDER
     Dosage: 75 MG, 1X/DAY
     Route: 048
     Dates: start: 20090201, end: 20090401
  2. DEPAKOTE [Suspect]
     Indication: MENTAL DISORDER
     Dosage: 750 MG, 1X/DAY
     Route: 048
     Dates: start: 20090201, end: 20090401

REACTIONS (2)
  - MATERNAL EXPOSURE DURING PREGNANCY [None]
  - ABORTION INDUCED [None]
